FAERS Safety Report 5194431-2 (Version None)
Quarter: 2006Q4

REPORT INFORMATION
  Report Type: 
  Country: None (occurrence: None)
  Receive Date: 20061221
  Receipt Date: 20061219
  Transmission Date: 20070319
  Serious: Yes (Other)
  Sender: FDA-Public Use
  Company Number: HQWYE590219DEC06

PATIENT
  Sex: Male

DRUGS (4)
  1. RAPAMUNE [Suspect]
     Indication: PROPHYLAXIS AGAINST TRANSPLANT REJECTION
     Dosage: TITRATE TO THERAPEUTIC LEVEL OF 8 NG/ML
  2. THYMOGLOBULIN [Concomitant]
  3. CELLCEPT [Concomitant]
  4. PROGRAF [Concomitant]

REACTIONS (3)
  - CHRONIC ALLOGRAFT NEPHROPATHY [None]
  - COMPLICATIONS OF TRANSPLANT SURGERY [None]
  - HYPERCHOLESTEROLAEMIA [None]
